FAERS Safety Report 9959291 (Version 1)
Quarter: 2014Q1

REPORT INFORMATION
  Report Type: Report from Study
  Country: US (occurrence: US)
  Receive Date: 20140305
  Receipt Date: 20140305
  Transmission Date: 20141002
  Serious: No
  Sender: FDA-Public Use
  Company Number: US-ABBVIE-13P-163-1102337-00

PATIENT
  Age: 50 Year
  Sex: Female

DRUGS (18)
  1. HUMIRA [Suspect]
     Indication: PSORIASIS
     Dates: start: 20121119
  2. HUMIRA [Suspect]
  3. MELOXICAM [Concomitant]
     Indication: ARTHRALGIA
     Dosage: 15 MG DAILY AS REQUIRED
  4. OMEPRAZOLE [Concomitant]
     Indication: PROPHYLAXIS AGAINST GASTROINTESTINAL ULCER
     Dosage: 20 MG DAILY
  5. LOSARTAN [Concomitant]
     Indication: HYPERTENSION
     Dosage: 100 MG DAILY
  6. CYMBALTA [Concomitant]
     Indication: DEPRESSION
     Dosage: 60 MG DAILY
  7. CYMBALTA [Concomitant]
     Indication: FIBROMYALGIA
  8. LEVOTHYROXINE [Concomitant]
     Indication: HYPOTHYROIDISM
     Dosage: 75 MCG DAILY
  9. ESTRADIOL TRANSDERMAL [Concomitant]
     Indication: HORMONE REPLACEMENT THERAPY
     Dosage: 2 PUMPS EVERY OTHER DAY
  10. VITAMIN D [Concomitant]
     Indication: VITAMIN D DECREASED
     Dosage: 2000 IU DAILY
  11. FLONASE [Concomitant]
     Indication: SEASONAL ALLERGY
     Dosage: 0.05 MG X 2 SPRAYS (1 IN EACH NOSTRIL)
     Route: 045
  12. ZYRTEC [Concomitant]
     Indication: SEASONAL ALLERGY
     Dosage: 1 DAILY
  13. CARISOPRODOL [Concomitant]
     Indication: INSOMNIA
  14. VECTICAL [Concomitant]
     Indication: PSORIASIS
     Route: 061
  15. XANAX [Concomitant]
     Indication: ANXIETY
     Dosage: 0.25MG 3 TIMES A DAY OR AS REQUIRED
  16. ULTRAM [Concomitant]
     Indication: ARTHRALGIA
     Dosage: 50MG 1 EVERY 8 HOURS OR AS REQUIRED
  17. METOPROLOL [Concomitant]
     Indication: HYPERTENSION
     Dosage: 100 MG DAILY
  18. AMLODIPINE [Concomitant]
     Indication: HYPERTENSION
     Dosage: 10 MG DAILY

REACTIONS (4)
  - Drug dose omission [Unknown]
  - Atypical pneumonia [Recovered/Resolved]
  - Death of relative [Unknown]
  - Emotional disorder [Unknown]
